FAERS Safety Report 6491451-2 (Version None)
Quarter: 2009Q4

REPORT INFORMATION
  Report Type: 
  Country: None (occurrence: None)
  Receive Date: 20091211
  Receipt Date: 20091203
  Transmission Date: 20100525
  Serious: Yes (Other)
  Sender: FDA-Public Use
  Company Number: CHNY2009JP02095

PATIENT
  Age: 87 Year
  Sex: Female

DRUGS (1)
  1. PURSENNID (NCH) [Suspect]
     Dosage: 24 MG, QD
     Route: 048
     Dates: start: 20060518

REACTIONS (3)
  - ALCOHOL USE [None]
  - FAECES DISCOLOURED [None]
  - INTENTIONAL DRUG MISUSE [None]
